FAERS Safety Report 4512956-7 (Version None)
Quarter: 2004Q4

REPORT INFORMATION
  Report Type: 
  Country: None (occurrence: None)
  Receive Date: 20041124
  Receipt Date: 20041115
  Transmission Date: 20050328
  Serious: Yes (Hospitalization)
  Sender: FDA-Public Use
  Company Number: 2004093404

PATIENT
  Age: 43 Year
  Sex: Female

DRUGS (2)
  1. PSEUDOEPHEDRINE HCL [Suspect]
     Dosage: ORAL
     Route: 048
  2. CAFFEINE (CAFFEINE) [Suspect]
     Dosage: ORAL
     Route: 048

REACTIONS (5)
  - CHEST PAIN [None]
  - HYPERTENSION [None]
  - SLEEP DISORDER [None]
  - TREMOR [None]
  - VISION BLURRED [None]
